FAERS Safety Report 8215671 (Version 4)
Quarter: 2016Q2

REPORT INFORMATION
  Report Type: Spontaneous
  Country: US (occurrence: US)
  Receive Date: 20111031
  Receipt Date: 20160422
  Transmission Date: 20160815
  Serious: Yes (Hospitalization, Congenital Anomaly, Other)
  Sender: FDA-Public Use
  Company Number: US-GLAXOSMITHKLINE-A0951260A

PATIENT
  Sex: Female

DRUGS (5)
  1. PAXIL [Suspect]
     Active Substance: PAROXETINE HYDROCHLORIDE
     Indication: DEPRESSION
     Dosage: 20 MG, 1D
     Route: 064
     Dates: start: 1997, end: 2006
  2. MACROBID [Concomitant]
     Active Substance: NITROFURANTOIN\NITROFURANTOIN MONOHYDRATE
     Dosage: UNK
  3. HEMOCYTE [Concomitant]
     Dosage: UNK
  4. PAROXETINE HYDROCHLORIDE. [Suspect]
     Active Substance: PAROXETINE HYDROCHLORIDE
     Indication: PRODUCT USED FOR UNKNOWN INDICATION
     Dosage: 20 MG, 1D
     Route: 064
     Dates: start: 20141031, end: 20150327
  5. VAGINAL CREAM [Concomitant]
     Dosage: UNK

REACTIONS (9)
  - Pulmonary valve stenosis [Unknown]
  - Pulmonary artery stenosis congenital [Unknown]
  - Patent ductus arteriosus [Unknown]
  - Transient ischaemic attack [Unknown]
  - Ventricular hypertrophy [Unknown]
  - Foetal exposure during pregnancy [Unknown]
  - Cardiomyopathy [Unknown]
  - Fallot^s tetralogy [Unknown]
  - Atrial septal defect [Unknown]
